FAERS Safety Report 26059919 (Version 1)
Quarter: 2025Q4

REPORT INFORMATION
  Report Type: Spontaneous
  Country: CA (occurrence: CA)
  Receive Date: 20251118
  Receipt Date: 20251118
  Transmission Date: 20260118
  Serious: Yes (Other)
  Sender: ROCHE
  Company Number: CA-ROCHE-10000434970

PATIENT
  Age: 68 Year

DRUGS (1)
  1. VABYSMO [Suspect]
     Active Substance: FARICIMAB-SVOA
     Indication: Age-related macular degeneration
     Dosage: SOLUTION INTRAVITREAL
     Route: 031

REACTIONS (5)
  - Dry skin [Unknown]
  - Erythema [Unknown]
  - Periorbital swelling [Unknown]
  - Skin exfoliation [Unknown]
  - Type IV hypersensitivity reaction [Unknown]
